FAERS Safety Report 4554363-7 (Version None)
Quarter: 2004Q4

REPORT INFORMATION
  Report Type: 
  Country: None (occurrence: None)
  Receive Date: 20041230
  Receipt Date: 20040722
  Transmission Date: 20050328
  Serious: Yes (Hospitalization, Other)
  Sender: FDA-Public Use
  Company Number: 04-07-1053

PATIENT
  Age: 29 Year
  Sex: Male

DRUGS (6)
  1. CLOZAPINE [Suspect]
     Indication: SCHIZOPHRENIA
     Dosage: 25-50MG QD ORAL
     Route: 048
     Dates: start: 19990201, end: 20040701
  2. LITHOBID [Concomitant]
  3. COGENTIN [Concomitant]
  4. RISPERDAL [Concomitant]
  5. SYNTHROID [Concomitant]
  6. PRILOSEC [Concomitant]

REACTIONS (7)
  - ABDOMINAL PAIN [None]
  - ANAEMIA [None]
  - DIARRHOEA [None]
  - PNEUMONIA [None]
  - PYREXIA [None]
  - SOMNOLENCE [None]
  - WHITE BLOOD CELL COUNT INCREASED [None]
